FAERS Safety Report 10062662 (Version 1)
Quarter: 2014Q1

REPORT INFORMATION
  Report Type: Spontaneous
  Country: US (occurrence: None)
  Receive Date: 20140313
  Receipt Date: 20140313
  Transmission Date: 20141002
  Serious: No
  Sender: FDA-Public Use
  Company Number: 1000049801

PATIENT
  Age: 75 Year
  Sex: Male

DRUGS (5)
  1. DALIRESP [Suspect]
     Indication: CHRONIC OBSTRUCTIVE PULMONARY DISEASE
     Dosage: 500 MCG (500 MCG, 1 IN 1 D
     Dates: start: 20131002
  2. ADVAIR (SERETIDE) (SERETIDE) [Concomitant]
  3. LOVASTATIN (LOVASTATIN) (LOVASTATIN) [Concomitant]
  4. NADOLOL (NADOLOL) (NADOLOL) [Concomitant]
  5. SPIRIVA (TIOTROPIUM BROMIDE) (TIOTROPIUM BROMIDE) [Concomitant]

REACTIONS (4)
  - Diarrhoea [None]
  - Nausea [None]
  - Influenza like illness [None]
  - Drug ineffective [None]
